FAERS Safety Report 4929042-4 (Version None)
Quarter: 2006Q1

REPORT INFORMATION
  Report Type: 
  Country: None (occurrence: None)
  Receive Date: 20060130
  Receipt Date: 20051209
  Transmission Date: 20060701
  Serious: Yes (Death, Life-Threatening)
  Sender: FDA-Public Use
  Company Number: RB-2443-2005

PATIENT
  Age: 19 Year
  Sex: Male
  Weight: 72.5755 kg

DRUGS (4)
  1. SUBOXONE [Suspect]
     Dosage: 16 MG BID SL
     Route: 060
     Dates: start: 20051003, end: 20051208
  2. ABILIFY [Concomitant]
  3. CYMBALTA [Concomitant]
  4. DEPAKOTE [Concomitant]

REACTIONS (1)
  - DEATH [None]
